FAERS Safety Report 4452211-7 (Version None)
Quarter: 2004Q3

REPORT INFORMATION
  Report Type: 
  Country: None (occurrence: None)
  Receive Date: 20040917
  Receipt Date: 20040907
  Transmission Date: 20050211
  Serious: Yes (Hospitalization)
  Sender: FDA-Public Use
  Company Number: US-JNJFOC-20040902316

PATIENT
  Age: 60 Year
  Sex: Male

DRUGS (7)
  1. DURAGESIC [Suspect]
     Route: 062
  2. DURAGESIC [Suspect]
     Route: 062
  3. DURAGESIC [Suspect]
     Route: 062
  4. DURAGESIC [Suspect]
     Route: 062
  5. PERCOCET [Concomitant]
     Route: 049
  6. PERCOCET [Concomitant]
     Indication: PAIN
     Route: 049
  7. EFFEXOR [Concomitant]
     Route: 049

REACTIONS (2)
  - DEPRESSION [None]
  - FEMUR FRACTURE [None]
